FAERS Safety Report 8520601-9 (Version None)
Quarter: 2012Q3

REPORT INFORMATION
  Report Type: 
  Country: None (occurrence: None)
  Receive Date: 20120719
  Receipt Date: 20120712
  Transmission Date: 20120928
  Serious: Yes (Hospitalization)
  Sender: FDA-Public Use
  Company Number: SE-PFIZER INC-2012167489

PATIENT
  Age: 78 Year
  Sex: Female

DRUGS (8)
  1. SIMVASTATIN [Concomitant]
     Dosage: UNK
  2. NOVORAPID [Concomitant]
     Dosage: UNK
  3. LYRICA [Suspect]
     Indication: FACIAL PAIN
     Dosage: 150 MG, DAILY
     Route: 048
     Dates: end: 20120525
  4. TEGRETOL [Suspect]
     Dosage: 800 MG, DAILY
     Route: 048
  5. WARFARIN SODIUM [Concomitant]
     Dosage: UNK
  6. METFORMIN [Concomitant]
     Dosage: UNK
  7. METOPROLOL TARTRATE [Concomitant]
     Dosage: UNK
  8. RANITIDINE [Concomitant]
     Dosage: UNK

REACTIONS (4)
  - TOXICITY TO VARIOUS AGENTS [None]
  - MUSCULAR WEAKNESS [None]
  - SPEECH DISORDER [None]
  - DIZZINESS [None]
